FAERS Safety Report 20688192 (Version 1)
Quarter: 2022Q2

REPORT INFORMATION
  Report Type: Spontaneous
  Country: GB (occurrence: None)
  Receive Date: 20220408
  Receipt Date: 20220408
  Transmission Date: 20220721
  Serious: Yes (Hospitalization)
  Sender: FDA-Public Use
  Company Number: 2022A137141

PATIENT
  Age: 59 Year
  Sex: Male

DRUGS (3)
  1. DAPAGLIFLOZIN [Suspect]
     Active Substance: DAPAGLIFLOZIN
     Indication: Type 2 diabetes mellitus
     Route: 048
  2. METFORMIN [Concomitant]
     Active Substance: METFORMIN HYDROCHLORIDE
     Indication: Type 2 diabetes mellitus
     Route: 065
  3. EXENATIDE [Concomitant]
     Active Substance: EXENATIDE
     Indication: Type 2 diabetes mellitus
     Route: 065

REACTIONS (6)
  - Hypovolaemia [Unknown]
  - Pulmonary embolism [Unknown]
  - Right ventricular dysfunction [Unknown]
  - Blood viscosity increased [Unknown]
  - Hypercoagulation [Unknown]
  - Euglycaemic diabetic ketoacidosis [Recovered/Resolved]
